FAERS Safety Report 6440273-7 (Version None)
Quarter: 2009Q4

REPORT INFORMATION
  Report Type: 
  Country: None (occurrence: None)
  Receive Date: 20091113
  Receipt Date: 20091106
  Transmission Date: 20100525
  Serious: No
  Sender: FDA-Public Use
  Company Number: B0603195A

PATIENT
  Age: 17 Year
  Sex: Male

DRUGS (2)
  1. RELENZA [Suspect]
     Indication: DRUG USE FOR UNKNOWN INDICATION
     Dosage: 40MG PER DAY
     Route: 055
  2. CALONAL [Concomitant]
     Route: 065

REACTIONS (2)
  - OVERDOSE [None]
  - VOMITING [None]
